FAERS Safety Report 6603126-7 (Version None)
Quarter: 2010Q1

REPORT INFORMATION
  Report Type: 
  Country: None (occurrence: None)
  Receive Date: 20100226
  Receipt Date: 20100219
  Transmission Date: 20100710
  Serious: Yes (Hospitalization)
  Sender: FDA-Public Use
  Company Number: US-SANOFI-AVENTIS-2010SA008837

PATIENT
  Age: 73 Year
  Sex: Male

DRUGS (17)
  1. MULTAQ [Suspect]
     Indication: ATRIAL FIBRILLATION
     Route: 048
     Dates: start: 20091101
  2. FLOMAX [Concomitant]
  3. COUMADIN [Concomitant]
     Indication: ATRIAL FIBRILLATION
  4. ATENOLOL [Concomitant]
  5. POTASSIUM [Concomitant]
  6. MAXZIDE [Concomitant]
     Indication: BLOOD PRESSURE
  7. PROSCAR [Concomitant]
  8. ALLOPURINOL [Concomitant]
  9. CIALIS [Concomitant]
     Indication: PULMONARY HYPERTENSION
  10. SPIRIVA [Concomitant]
  11. VENTOLIN [Concomitant]
     Indication: CHRONIC OBSTRUCTIVE PULMONARY DISEASE
  12. VENTOLIN [Concomitant]
     Indication: EMPHYSEMA
  13. VENTOLIN [Concomitant]
     Indication: ASTHMA
  14. VITAMIN D [Concomitant]
  15. VITAMIN B COMPLEX CAP [Concomitant]
  16. AMINO ACIDS [Concomitant]
  17. LASIX [Concomitant]
     Dosage: 60MG/40MG

REACTIONS (3)
  - OEDEMA [None]
  - TACHYCARDIA [None]
  - VITREOUS FLOATERS [None]
